FAERS Safety Report 12826166 (Version 1)
Quarter: 2016Q4

REPORT INFORMATION
  Report Type: Spontaneous
  Country: US (occurrence: US)
  Receive Date: 20161006
  Receipt Date: 20161006
  Transmission Date: 20170207
  Serious: No
  Sender: FDA-Public Use
  Company Number: US-JAZZ-2016-US-012519

PATIENT
  Sex: Female

DRUGS (49)
  1. BUTRANS [Concomitant]
     Active Substance: BUPRENORPHINE
  2. LOMOTIL [Concomitant]
     Active Substance: ATROPINE SULFATE\DIPHENOXYLATE HYDROCHLORIDE
  3. LOTRONEX [Concomitant]
     Active Substance: ALOSETRON HYDROCHLORIDE
  4. DULOXETINE HCL [Concomitant]
     Active Substance: DULOXETINE HYDROCHLORIDE
  5. MESTINON [Concomitant]
     Active Substance: PYRIDOSTIGMINE BROMIDE
  6. ONDANSETRON HCL [Concomitant]
     Active Substance: ONDANSETRON HYDROCHLORIDE
  7. VITAMIN C [Concomitant]
     Active Substance: ASCORBIC ACID
  8. PRIMIDONE. [Concomitant]
     Active Substance: PRIMIDONE
  9. XANAX [Concomitant]
     Active Substance: ALPRAZOLAM
  10. XYREM [Suspect]
     Active Substance: SODIUM OXYBATE
     Indication: NARCOLEPSY
     Dosage: 3.75 G, BID
     Route: 048
     Dates: start: 200406, end: 200710
  11. VOLTAREN [Concomitant]
     Active Substance: DICLOFENAC SODIUM
  12. OSCIMIN [Concomitant]
     Active Substance: HYOSCYAMINE SULFATE
  13. PERCOCET [Concomitant]
     Active Substance: ACETAMINOPHEN\OXYCODONE HYDROCHLORIDE
  14. HYDROMORPHONE HCL [Concomitant]
     Active Substance: HYDROMORPHONE HYDROCHLORIDE
  15. MICROGESTIN [Concomitant]
     Active Substance: ETHINYL ESTRADIOL\NORETHINDRONE ACETATE
  16. DIAZEPAM. [Concomitant]
     Active Substance: DIAZEPAM
  17. LEXAPRO [Concomitant]
     Active Substance: ESCITALOPRAM OXALATE
  18. PREDNISONE. [Concomitant]
     Active Substance: PREDNISONE
  19. CLONAZEPAM. [Concomitant]
     Active Substance: CLONAZEPAM
  20. WELCHOL [Concomitant]
     Active Substance: COLESEVELAM HYDROCHLORIDE
  21. OXYCODONE AND ACETAMINOPHEN [Concomitant]
     Active Substance: ACETAMINOPHEN\OXYCODONE HYDROCHLORIDE
  22. NIZORAL [Concomitant]
     Active Substance: KETOCONAZOLE
  23. SUMATRIPTAN SUCCINATE. [Concomitant]
     Active Substance: SUMATRIPTAN SUCCINATE
  24. CYCLOBENZAPRINE [Concomitant]
     Active Substance: CYCLOBENZAPRINE
  25. MIRALAX [Concomitant]
     Active Substance: POLYETHYLENE GLYCOL 3350
  26. PROTONIX [Concomitant]
     Active Substance: PANTOPRAZOLE SODIUM
  27. MORPHINE SULF [Concomitant]
     Active Substance: MORPHINE SULFATE
  28. DIPHENOXYLATE/ATROPINE [Concomitant]
     Active Substance: ATROPINE\DIPHENOXYLATE
  29. XYREM [Suspect]
     Active Substance: SODIUM OXYBATE
     Indication: CATAPLEXY
     Dosage: DOSE ADJUSTMENTS
     Route: 048
     Dates: start: 200710, end: 201310
  30. TRAMADOL HCL [Concomitant]
     Active Substance: TRAMADOL HYDROCHLORIDE
  31. ERGOCALCIFEROL. [Concomitant]
     Active Substance: ERGOCALCIFEROL
  32. IMITREX [Concomitant]
     Active Substance: SUMATRIPTAN SUCCINATE
  33. ZEBETA [Concomitant]
     Active Substance: BISOPROLOL FUMARATE
  34. BISOPROLOL FUMARATE. [Concomitant]
     Active Substance: BISOPROLOL FUMARATE
  35. GABAPENTIN. [Concomitant]
     Active Substance: GABAPENTIN
  36. KETOCONAZOLE. [Concomitant]
     Active Substance: KETOCONAZOLE
  37. MAXALT [Concomitant]
     Active Substance: RIZATRIPTAN BENZOATE
  38. CROMOLYN [Concomitant]
     Active Substance: CROMOLYN
  39. ROBAXIN [Concomitant]
     Active Substance: METHOCARBAMOL
  40. TIZANIDINE HCL [Concomitant]
     Active Substance: TIZANIDINE HYDROCHLORIDE
  41. BENADRYL ALLERGY [Concomitant]
     Active Substance: DIPHENHYDRAMINE HYDROCHLORIDE
  42. XYREM [Suspect]
     Active Substance: SODIUM OXYBATE
     Dosage: 4.5 G, BID
     Route: 048
     Dates: start: 201310
  43. NAPROXEN. [Suspect]
     Active Substance: NAPROXEN
     Indication: MIGRAINE
     Dosage: UNK
     Dates: start: 201606, end: 2016
  44. FLUDROCORTISONE [Concomitant]
     Active Substance: FLUDROCORTISONE
  45. LAMOTRIGINE. [Concomitant]
     Active Substance: LAMOTRIGINE
  46. HYDROCODONE/ACETAMINOPHEN [Concomitant]
     Active Substance: ACETAMINOPHEN\HYDROCODONE
  47. PSYLLIUM HUSK [Concomitant]
     Active Substance: PSYLLIUM HUSK
  48. FENTANYL. [Concomitant]
     Active Substance: FENTANYL
  49. FLORINEF ACETATE [Concomitant]
     Active Substance: FLUDROCORTISONE ACETATE

REACTIONS (2)
  - Migraine [Unknown]
  - Dyspepsia [Unknown]

NARRATIVE: CASE EVENT DATE: 2016
